FAERS Safety Report 18620854 (Version 1)
Quarter: 2020Q4

REPORT INFORMATION
  Report Type: Report from Study
  Country: US (occurrence: US)
  Receive Date: 20201215
  Receipt Date: 20201215
  Transmission Date: 20210114
  Serious: Yes (Hospitalization)
  Sender: FDA-Public Use
  Company Number: US-JNJFOC-20201213560

PATIENT
  Age: 56 Year
  Sex: Female

DRUGS (3)
  1. SPRAVATO [Suspect]
     Active Substance: ESKETAMINE
     Indication: DEPRESSION
  2. SPRAVATO [Suspect]
     Active Substance: ESKETAMINE
     Dates: start: 20201204, end: 20201204
  3. SPRAVATO [Suspect]
     Active Substance: ESKETAMINE
     Dates: start: 202012, end: 202012

REACTIONS (2)
  - Dissociation [Recovered/Resolved]
  - Mania [Unknown]

NARRATIVE: CASE EVENT DATE: 202012
